FAERS Safety Report 24639842 (Version 1)
Quarter: 2024Q4

REPORT INFORMATION
  Report Type: Report from Study
  Country: CA (occurrence: CA)
  Receive Date: 20241120
  Receipt Date: 20241120
  Transmission Date: 20250115
  Serious: Yes (Other)
  Sender: ABBVIE
  Company Number: CA-ABBVIE-5973751

PATIENT
  Age: 47 Year
  Sex: Female

DRUGS (1)
  1. SKYRIZI [Suspect]
     Active Substance: RISANKIZUMAB-RZAA
     Indication: Crohn^s disease
     Route: 042
     Dates: start: 20241010

REACTIONS (9)
  - Obstruction [Unknown]
  - Flatulence [Unknown]
  - Pain [Unknown]
  - Abdominal pain [Unknown]
  - Haematochezia [Unknown]
  - Infrequent bowel movements [Unknown]
  - Food intolerance [Unknown]
  - Disease risk factor [Unknown]
  - Intestinal obstruction [Unknown]

NARRATIVE: CASE EVENT DATE: 20241001
